FAERS Safety Report 4519809-9 (Version None)
Quarter: 2004Q4

REPORT INFORMATION
  Report Type: 
  Country: None (occurrence: None)
  Receive Date: 20041207
  Receipt Date: 20041124
  Transmission Date: 20050328
  Serious: Yes (Hospitalization)
  Sender: FDA-Public Use
  Company Number: IT-JNJFOC-20041106135

PATIENT
  Sex: Male

DRUGS (5)
  1. TRIASPORIN [Suspect]
     Indication: GLOSSITIS
     Dosage: 100MG/DIE
     Route: 049
     Dates: start: 20041015, end: 20041023
  2. AMOXYCILLIN CLAVULANIC ACID [Concomitant]
     Route: 049
     Dates: start: 20041006, end: 20041012
  3. AMOXYCILLIN CLAVULANIC ACID [Concomitant]
     Indication: GLOSSITIS
     Route: 049
     Dates: start: 20041006, end: 20041012
  4. INSULIN [Concomitant]
     Route: 065
  5. LORAZEPAM [Concomitant]
     Route: 065

REACTIONS (1)
  - PANCYTOPENIA [None]
